FAERS Safety Report 6383566-4 (Version None)
Quarter: 2009Q4

REPORT INFORMATION
  Report Type: 
  Country: None (occurrence: None)
  Receive Date: 20091001
  Receipt Date: 20090923
  Transmission Date: 20100525
  Serious: Yes (Hospitalization)
  Sender: FDA-Public Use
  Company Number: DE-ROCHE-658442

PATIENT
  Sex: Female

DRUGS (1)
  1. XELODA [Suspect]
     Indication: BREAST CANCER
     Dosage: EVENTS ONLY AFTER LAST PACKAGE
     Route: 065
     Dates: start: 20080201

REACTIONS (3)
  - DIARRHOEA [None]
  - METASTASIS [None]
  - VOMITING [None]
